FAERS Safety Report 10369927 (Version 4)
Quarter: 2014Q3

REPORT INFORMATION
  Report Type: Report from Study
  Country: US (occurrence: US)
  Receive Date: 20140808
  Receipt Date: 20140908
  Transmission Date: 20150326
  Serious: Yes (Other)
  Sender: FDA-Public Use
  Company Number: US-BIOGENIDEC-2014BI077227

PATIENT
  Sex: Female

DRUGS (1)
  1. AVONEX [Suspect]
     Active Substance: INTERFERON BETA-1A
     Indication: MULTIPLE SCLEROSIS
     Route: 030
     Dates: start: 20140323

REACTIONS (3)
  - Breast cancer [Unknown]
  - Neoplasm malignant [Not Recovered/Not Resolved]
  - Breast mass [Unknown]

NARRATIVE: CASE EVENT DATE: 2014
